FAERS Safety Report 10264095 (Version 1)
Quarter: 2014Q2

REPORT INFORMATION
  Report Type: Other
  Country: DE (occurrence: DE)
  Receive Date: 20140627
  Receipt Date: 20140627
  Transmission Date: 20141212
  Serious: No
  Sender: FDA-Public Use
  Company Number: DE-LUPIN PHARMACEUTICALS INC.-E2B_00001910

PATIENT
  Age: 69 Year
  Sex: Female
  Weight: 65 kg

DRUGS (5)
  1. SIMVASTATIN [Suspect]
     Indication: HYPERLIPIDAEMIA
     Route: 048
     Dates: start: 20140313, end: 20140317
  2. FOSTER [Concomitant]
     Indication: CHRONIC OBSTRUCTIVE PULMONARY DISEASE
     Dosage: 2X1 HUB
     Route: 055
  3. BRETARIS [Concomitant]
     Indication: CHRONIC OBSTRUCTIVE PULMONARY DISEASE
     Dosage: 2X1 HUB
     Route: 055
  4. L-THYROXIN [Concomitant]
     Indication: HYPOTHYROIDISM
     Route: 048
  5. ASS 100 [Concomitant]
     Indication: ARTERIOSCLEROSIS
     Route: 048
     Dates: start: 20140312

REACTIONS (1)
  - Myalgia [Unknown]
